FAERS Safety Report 6896644-8 (Version None)
Quarter: 2010Q3

REPORT INFORMATION
  Report Type: 
  Country: None (occurrence: None)
  Receive Date: 20100802
  Receipt Date: 20070427
  Transmission Date: 20110219
  Serious: No
  Sender: FDA-Public Use
  Company Number: US-PFIZER INC-2007001741

PATIENT
  Sex: Female

DRUGS (2)
  1. LYRICA [Suspect]
     Indication: INTERVERTEBRAL DISC DEGENERATION
  2. LYRICA [Suspect]
     Indication: PAIN

REACTIONS (4)
  - ANXIETY [None]
  - DEPRESSED MOOD [None]
  - DRUG INEFFECTIVE [None]
  - NERVOUSNESS [None]
